FAERS Safety Report 4506897-9 (Version None)
Quarter: 2004Q4

REPORT INFORMATION
  Report Type: 
  Country: None (occurrence: None)
  Receive Date: 20041117
  Receipt Date: 20041102
  Transmission Date: 20050328
  Serious: Yes (Hospitalization)
  Sender: FDA-Public Use
  Company Number: 2004091473

PATIENT
  Age: 11 Year
  Sex: Male

DRUGS (2)
  1. CLINDAMYCIN PHOSPHATE SOLUTION, STERILE (CLINDAMYCIN PHOSPHATE) [Suspect]
     Indication: OSTEOMYELITIS
     Dosage: 1400 MG (350 MG, QID), INTRAVENOUS
     Route: 042
     Dates: start: 20040923, end: 20041017
  2. EKVACILLIN (CLOXACILLIN SODIUM) [Suspect]
     Indication: OSTEOMYELITIS
     Dosage: 4600 MG (1150 MG, QID), INTRAVENOUS
     Route: 042
     Dates: start: 20040922, end: 20041016

REACTIONS (4)
  - EXANTHEM [None]
  - PRURITUS [None]
  - PYREXIA [None]
  - RASH MACULO-PAPULAR [None]
